FAERS Safety Report 15952768 (Version 3)
Quarter: 2020Q2

REPORT INFORMATION
  Report Type: Report from Study
  Country: AU (occurrence: AU)
  Receive Date: 20190211
  Receipt Date: 20200507
  Transmission Date: 20200713
  Serious: Yes (Hospitalization, Other)
  Sender: FDA-Public Use
  Company Number: AU-TOLMAR, INC.-2019AU001174

PATIENT
  Age: 75 Year
  Sex: Male

DRUGS (2)
  1. CHEMOTHERAPEUTICS [Suspect]
     Active Substance: UNSPECIFIED INGREDIENT
     Indication: PRODUCT USED FOR UNKNOWN INDICATION
     Route: 065
  2. ELIGARD [Suspect]
     Active Substance: LEUPROLIDE ACETATE
     Indication: PROSTATE CANCER
     Dosage: 22.5 MG, 3 MONTHLY
     Route: 058
     Dates: start: 20140917

REACTIONS (12)
  - Back pain [Not Recovered/Not Resolved]
  - Asthenia [Unknown]
  - Hot flush [Unknown]
  - Neck mass [Not Recovered/Not Resolved]
  - Fatigue [Unknown]
  - Thrombosis [Unknown]
  - Balance disorder [Unknown]
  - Pulmonary mass [Not Recovered/Not Resolved]
  - Mobility decreased [Not Recovered/Not Resolved]
  - Muscle tightness [Not Recovered/Not Resolved]
  - Muscle atrophy [Not Recovered/Not Resolved]
  - Prostatic specific antigen increased [Not Recovered/Not Resolved]

NARRATIVE: CASE EVENT DATE: 20180504
